FAERS Safety Report 20756417 (Version 1)
Quarter: 2022Q2

REPORT INFORMATION
  Report Type: Spontaneous
  Country: US (occurrence: None)
  Receive Date: 20220427
  Receipt Date: 20220427
  Transmission Date: 20220720
  Serious: Yes (Disabling)
  Sender: FDA-Public Use
  Company Number: None

PATIENT
  Age: 37 Year
  Sex: Male

DRUGS (1)
  1. LEVOFLOXACIN [Suspect]
     Active Substance: LEVOFLOXACIN
     Indication: Tonsillitis
     Dates: start: 20200722, end: 20200801

REACTIONS (21)
  - Product dispensing error [None]
  - Wrong product administered [None]
  - Haemorrhoids [None]
  - Muscular weakness [None]
  - Skin atrophy [None]
  - Diplopia [None]
  - Vision blurred [None]
  - Asthenia [None]
  - Parosmia [None]
  - Taste disorder [None]
  - Depressed level of consciousness [None]
  - Fatigue [None]
  - Joint noise [None]
  - Alopecia [None]
  - Dry mouth [None]
  - Nasal dryness [None]
  - Muscle tightness [None]
  - Myalgia [None]
  - Sensory loss [None]
  - Job dissatisfaction [None]
  - Impaired quality of life [None]

NARRATIVE: CASE EVENT DATE: 20200722
